FAERS Safety Report 5159494-9 (Version None)
Quarter: 2006Q4

REPORT INFORMATION
  Report Type: 
  Country: None (occurrence: None)
  Receive Date: 20061129
  Receipt Date: 20061024
  Transmission Date: 20070319
  Serious: Yes (Death)
  Sender: FDA-Public Use
  Company Number: DE-BAYER-200611409BVD

PATIENT
  Sex: Male
  Weight: 72 kg

DRUGS (6)
  1. LEVITRA [Suspect]
     Indication: ERECTILE DYSFUNCTION
     Route: 048
     Dates: start: 20050901
  2. CIALIS [Concomitant]
     Indication: ERECTILE DYSFUNCTION
     Route: 048
  3. ENAHEXAL COMP. [Concomitant]
  4. SIMVAHEXAL [Concomitant]
     Dosage: AS USED: 20 MG
  5. ASPIRIN [Concomitant]
  6. BISOPROLOL FUMARATE [Concomitant]

REACTIONS (1)
  - DEATH [None]
